FAERS Safety Report 6927462-X (Version None)
Quarter: 2010Q3

REPORT INFORMATION
  Report Type: 
  Country: None (occurrence: None)
  Receive Date: 20100817
  Receipt Date: 20100805
  Transmission Date: 20110219
  Serious: Yes (Hospitalization)
  Sender: FDA-Public Use
  Company Number: US-JNJFOC-20100802140

PATIENT
  Sex: Female
  Weight: 71.67 kg

DRUGS (8)
  1. REMICADE [Suspect]
     Indication: CROHN'S DISEASE
     Route: 042
  2. SYNTHROID [Concomitant]
     Indication: HYPOTHYROIDISM
  3. PREMARIN [Concomitant]
     Indication: HORMONE THERAPY
  4. ZYRTEC [Concomitant]
     Indication: MULTIPLE ALLERGIES
  5. FOLIC ACID [Concomitant]
     Indication: CROHN'S DISEASE
  6. DONNATAL [Concomitant]
     Indication: CROHN'S DISEASE
  7. MULTI-VITAMINS [Concomitant]
     Indication: NUTRITIONAL SUPPORT
  8. CALCIUM [Concomitant]
     Indication: NUTRITIONAL SUPPORT

REACTIONS (3)
  - ASTHMA [None]
  - ORAL PAIN [None]
  - STOMATITIS [None]
